FAERS Safety Report 8024346-3 (Version None)
Quarter: 2012Q1

REPORT INFORMATION
  Report Type: 
  Country: None (occurrence: None)
  Receive Date: 20120105
  Receipt Date: 20120104
  Transmission Date: 20120608
  Serious: Yes (Hospitalization)
  Sender: FDA-Public Use
  Company Number: PHHY2012NL000678

PATIENT
  Sex: Male

DRUGS (6)
  1. BLOOD TRANSFUSION, AUXILIARY PRODUCTS [Concomitant]
  2. ZOMETA [Suspect]
     Dosage: 4 MG/5 ML, ONCE PER 28 DAYS
     Route: 042
     Dates: start: 20120104
  3. ZOMETA [Suspect]
     Indication: PROSTATE CANCER METASTATIC
     Dosage: 4 MG/5 ML, ONCE PER 28 DAYS
     Route: 042
  4. ZOMETA [Suspect]
     Dosage: 4 MG/5 ML, ONCE PER 28 DAYS
     Route: 042
     Dates: start: 20090915
  5. ZOMETA [Suspect]
     Dosage: 4 MG/5 ML, ONCE PER 28 DAYS
     Route: 042
     Dates: start: 20111027
  6. CIPROFLOXACIN [Concomitant]
     Dosage: 500 MG, BID

REACTIONS (3)
  - HAEMOGLOBIN DECREASED [None]
  - DEHYDRATION [None]
  - URINARY RETENTION [None]
